FAERS Safety Report 8336920-5 (Version None)
Quarter: 2012Q2

REPORT INFORMATION
  Report Type: 
  Country: None (occurrence: None)
  Receive Date: 20120501
  Receipt Date: 20120417
  Transmission Date: 20120825
  Serious: Yes (Other)
  Sender: FDA-Public Use
  Company Number: EU-2011-10128

PATIENT
  Sex: Male
  Weight: 61 kg

DRUGS (14)
  1. OMEPRAZOLE [Concomitant]
  2. LACTULOSE [Concomitant]
  3. AMITRIPTYLINE HCL [Concomitant]
  4. SAMSCA [Suspect]
     Indication: INAPPROPRIATE ANTIDIURETIC HORMONE SECRETION
     Dosage: 7.5 MG MILLIGRAM(S), DAILY DOSE
     Dates: start: 20110709, end: 20110710
  5. SALINE (SALINE) [Concomitant]
  6. TRAMADOL HCL [Concomitant]
  7. FELODIPIN (FELODIPINE) [Concomitant]
  8. OXAZEPAM [Concomitant]
  9. BEHEPAN (CYANOCOBALAMIN) [Concomitant]
  10. FOLACIN (FOLIC ACID) [Concomitant]
  11. IMOVANE (ZOPICLONE) [Concomitant]
  12. CILAXORAL (SODIUM PICOSULFATE) [Concomitant]
  13. EMOVAT (CLOBETASONE BUTYRATE) [Concomitant]
  14. VALACYCLOVIR [Concomitant]

REACTIONS (4)
  - FLUID INTAKE RESTRICTION [None]
  - WRONG TECHNIQUE IN DRUG USAGE PROCESS [None]
  - TREATMENT NONCOMPLIANCE [None]
  - BLOOD CREATININE INCREASED [None]
